FAERS Safety Report 7875606-8 (Version None)
Quarter: 2011Q4

REPORT INFORMATION
  Report Type: 
  Country: None (occurrence: None)
  Receive Date: 20111031
  Receipt Date: 20111025
  Transmission Date: 20120403
  Serious: Yes (Other)
  Sender: FDA-Public Use
  Company Number: DE-SANOFI-AVENTIS-2011SA070220

PATIENT
  Sex: Male

DRUGS (1)
  1. ENOXAPARIN SODIUM [Suspect]
     Route: 065
     Dates: start: 20110824

REACTIONS (4)
  - PANIC ATTACK [None]
  - SLEEP DISORDER [None]
  - RASH [None]
  - FOOD INTOLERANCE [None]
